FAERS Safety Report 7369806-3 (Version None)
Quarter: 2011Q1

REPORT INFORMATION
  Report Type: 
  Country: None (occurrence: None)
  Receive Date: 20110323
  Receipt Date: 20110314
  Transmission Date: 20110831
  Serious: Yes (Other)
  Sender: FDA-Public Use
  Company Number: US-B.I. PHARMACEUTICALS,INC./RIDGEFIELD-2011-BP-07856BP

PATIENT
  Age: 66 Year
  Sex: Female

DRUGS (2)
  1. PRADAXA [Suspect]
     Indication: ATRIAL FIBRILLATION
     Dosage: 300 MG
     Route: 048
     Dates: start: 20110201, end: 20110301
  2. PRADAXA [Suspect]
     Indication: CEREBROVASCULAR ACCIDENT PROPHYLAXIS

REACTIONS (8)
  - CONTUSION [None]
  - DYSARTHRIA [None]
  - HEAD INJURY [None]
  - CONFUSIONAL STATE [None]
  - FALL [None]
  - MENTAL IMPAIRMENT [None]
  - NERVOUS SYSTEM DISORDER [None]
  - SPEECH DISORDER [None]
